FAERS Safety Report 24607514 (Version 1)
Quarter: 2024Q4

REPORT INFORMATION
  Report Type: Spontaneous
  Country: US (occurrence: US)
  Receive Date: 20241112
  Receipt Date: 20241112
  Transmission Date: 20250115
  Serious: No
  Sender: ELI LILLY AND COMPANY
  Company Number: US-ELI_LILLY_AND_COMPANY-US202411002492

PATIENT
  Age: 33 Year
  Sex: Female
  Weight: 81.633 kg

DRUGS (13)
  1. REYVOW [Suspect]
     Active Substance: LASMIDITAN
     Indication: Migraine
     Dosage: 100 MG, PRN
     Route: 048
     Dates: start: 2021, end: 202407
  2. BOTOX [Suspect]
     Active Substance: ONABOTULINUMTOXINA
     Indication: Migraine prophylaxis
     Dosage: 200 U, OTHER, EVERY 3 MONTHS
     Route: 030
     Dates: start: 2016
  3. ELETRIPTAN [Suspect]
     Active Substance: ELETRIPTAN
     Indication: Migraine
     Dosage: 40 MG, PRN
     Route: 048
     Dates: start: 2021
  4. AMOXICILLIN\CLAVULANATE POTASSIUM [Concomitant]
     Active Substance: AMOXICILLIN\CLAVULANATE POTASSIUM
     Indication: Sinusitis
     Dosage: 500 MG, BID
     Route: 048
     Dates: start: 202409
  5. BUDESONIDE [Concomitant]
     Active Substance: BUDESONIDE
     Indication: Sinusitis
     Dosage: 1.2 MG, PRN
     Route: 045
  6. PROPRANOLOL [Concomitant]
     Active Substance: PROPRANOLOL HYDROCHLORIDE
     Indication: Bruxism
     Dosage: 20 MG, BID
     Route: 048
     Dates: start: 2020
  7. SEROQUEL [Concomitant]
     Active Substance: QUETIAPINE FUMARATE
     Indication: Bipolar disorder
     Dosage: 250 MG, DAILY
     Route: 048
     Dates: start: 2020
  8. CLARITIN [Concomitant]
     Active Substance: LORATADINE
     Indication: Seasonal allergy
     Dosage: 10 MG, DAILY
     Route: 048
     Dates: start: 202312
  9. EUFLEXXA [Concomitant]
     Active Substance: HYALURONATE SODIUM
     Indication: Osteoarthritis
     Dosage: 1 DOSAGE FORM, OTHER, 1 INJECTION PER KNEE FOR 3 WEEKS, EVERY 6 MONTHS
     Route: 050
     Dates: start: 2014
  10. HYQVIA [Concomitant]
     Active Substance: HUMAN IMMUNOGLOBULIN G\HYALURONIDASE (HUMAN RECOMBINANT)
     Indication: Immunodeficiency
     Dosage: UNK, MONTHLY (1/M)
     Route: 058
     Dates: start: 2016
  11. TRETINOIN [Concomitant]
     Active Substance: TRETINOIN
     Indication: Acne
     Dosage: 0.05 %, 3/W
     Route: 061
     Dates: start: 2023, end: 202407
  12. CLINDAMYCIN [Concomitant]
     Active Substance: CLINDAMYCIN
     Indication: Acne
     Dosage: 1 %, BID
     Route: 061
     Dates: start: 2023
  13. FINACEA [Concomitant]
     Active Substance: AZELAIC ACID
     Indication: Acne
     Dosage: 15 %, DAILY
     Route: 061
     Dates: start: 20241001

REACTIONS (3)
  - COVID-19 [Recovered/Resolved]
  - Ear infection [Recovered/Resolved]
  - Gastritis [Not Recovered/Not Resolved]

NARRATIVE: CASE EVENT DATE: 20240301
